FAERS Safety Report 5201902-9 (Version None)
Quarter: 2006Q4

REPORT INFORMATION
  Report Type: 
  Country: None (occurrence: None)
  Receive Date: 20061010
  Receipt Date: 20060207
  Transmission Date: 20070319
  Serious: Yes (Other)
  Sender: FDA-Public Use
  Company Number: 2006-02-0226

PATIENT
  Age: 50 Year
  Sex: Female

DRUGS (4)
  1. TEMODAR [Suspect]
     Dosage: 130 MG QD ORAL
     Route: 048
     Dates: start: 20051129, end: 20060109
  2. RADIATION THEARPY NO DOSE FORM [Suspect]
     Dosage: X-RAY THERAPY
     Dates: start: 20051129, end: 20060109
  3. KEPPRA [Concomitant]
  4. PRILOSEC [Concomitant]

REACTIONS (2)
  - HERPES ZOSTER [None]
  - PANCYTOPENIA [None]
